FAERS Safety Report 25691577 (Version 1)
Quarter: 2025Q3

REPORT INFORMATION
  Report Type: Spontaneous
  Country: US (occurrence: US)
  Receive Date: 20250818
  Receipt Date: 20250818
  Transmission Date: 20251020
  Serious: Yes (Hospitalization, Other)
  Sender: AMGEN
  Company Number: US-AMGEN-USASP2025159854

PATIENT

DRUGS (2)
  1. RITUXIMAB [Suspect]
     Active Substance: RITUXIMAB
     Indication: B-cell lymphoma
     Route: 065
  2. PREDNISONE [Suspect]
     Active Substance: PREDNISONE
     Indication: B-cell lymphoma
     Route: 065

REACTIONS (27)
  - Febrile neutropenia [Unknown]
  - Coagulopathy [Unknown]
  - International normalised ratio increased [Unknown]
  - Headache [Unknown]
  - B-cell lymphoma [Unknown]
  - Pulmonary embolism [Unknown]
  - Sepsis [Unknown]
  - Thrombocytopenia [Unknown]
  - Bacteraemia [Unknown]
  - Leukopenia [Unknown]
  - Syncope [Unknown]
  - Pneumonia fungal [Unknown]
  - Atrial fibrillation [Unknown]
  - Thrombosis [Unknown]
  - Seizure [Unknown]
  - Acute kidney injury [Unknown]
  - Gastric ulcer [Unknown]
  - Anaemia [Unknown]
  - Peripheral sensory neuropathy [Unknown]
  - Infection [Unknown]
  - Haematuria [Unknown]
  - Herpes zoster [Unknown]
  - Diplopia [Unknown]
  - Asthenia [Unknown]
  - Tremor [Unknown]
  - Confusional state [Unknown]
  - Therapy partial responder [Unknown]
